FAERS Safety Report 6439701-2 (Version None)
Quarter: 2009Q4

REPORT INFORMATION
  Report Type: 
  Country: None (occurrence: None)
  Receive Date: 20091113
  Receipt Date: 20091104
  Transmission Date: 20100525
  Serious: Yes (Hospitalization)
  Sender: FDA-Public Use
  Company Number: GXKR2009DE12150

PATIENT
  Age: 14 Year
  Sex: Female

DRUGS (4)
  1. METHYLPREDNISOLONE [Suspect]
     Indication: SYSTEMIC LUPUS ERYTHEMATOSUS
     Dosage: PULSES
     Route: 065
  2. PREDNISOLONE [Suspect]
     Indication: SYSTEMIC LUPUS ERYTHEMATOSUS
     Dosage: 2 MG/KG TAPERED TO 0.2 MG/KG OVER 6 MONTHS
     Route: 048
  3. MYCOPHENOLATE MOFETIL [Concomitant]
  4. HYDROXYCHLOROQUINE SULFATE [Concomitant]

REACTIONS (5)
  - BACK PAIN [None]
  - EPIDURAL LIPOMATOSIS [None]
  - INCONTINENCE [None]
  - PARAESTHESIA [None]
  - VOMITING [None]
